FAERS Safety Report 4575128-6 (Version None)
Quarter: 2005Q1

REPORT INFORMATION
  Report Type: 
  Country: None (occurrence: None)
  Receive Date: 20050208
  Receipt Date: 20050128
  Transmission Date: 20050727
  Serious: Yes (Other)
  Sender: FDA-Public Use
  Company Number: PHBS2005IT01571

PATIENT
  Age: 17 Year
  Sex: Male

DRUGS (5)
  1. ANTILYMPHOCYTE GLOBULIN [Concomitant]
  2. STEROIDS NOS [Concomitant]
  3. NEUPOGEN [Concomitant]
  4. ANTIBIOTICS [Concomitant]
  5. CYCLOSPORINE [Suspect]
     Indication: APLASTIC ANAEMIA
     Dosage: 5 MG/KG/D
     Route: 065

REACTIONS (3)
  - GILBERT'S SYNDROME [None]
  - HYPERBILIRUBINAEMIA [None]
  - JAUNDICE [None]
